FAERS Safety Report 11692399 (Version 1)
Quarter: 2015Q4

REPORT INFORMATION
  Report Type: Report from Study
  Country: PH (occurrence: PH)
  Receive Date: 20151103
  Receipt Date: 20151103
  Transmission Date: 20160304
  Serious: Yes (Other)
  Sender: FDA-Public Use
  Company Number: PH-SA-2015SA170930

PATIENT

DRUGS (1)
  1. INSULIN GLULISINE [Suspect]
     Active Substance: INSULIN GLULISINE
     Indication: DIABETES MELLITUS
     Route: 065

REACTIONS (1)
  - Chronic kidney disease [Unknown]
